FAERS Safety Report 5884529-5 (Version None)
Quarter: 2008Q3

REPORT INFORMATION
  Report Type: 
  Country: None (occurrence: None)
  Receive Date: 20080916
  Receipt Date: 20080904
  Transmission Date: 20090109
  Serious: Yes (Other)
  Sender: FDA-Public Use
  Company Number: GB-JNJFOC-20080902467

PATIENT
  Age: 73 Year
  Sex: Male
  Weight: 95 kg

DRUGS (2)
  1. TRAMADOL HCL [Suspect]
     Indication: BACK DISORDER
     Route: 048
  2. ANADIN EXTRA [Interacting]
     Indication: DRUG USE FOR UNKNOWN INDICATION
     Dosage: 2 TABLETS 1 TIME PER TOTAL
     Route: 048

REACTIONS (4)
  - DIZZINESS [None]
  - DRUG INTERACTION [None]
  - RASH PRURITIC [None]
  - TREMOR [None]
